FAERS Safety Report 7534593-2 (Version None)
Quarter: 2011Q2

REPORT INFORMATION
  Report Type: 
  Country: None (occurrence: None)
  Receive Date: 20110609
  Receipt Date: 20100212
  Transmission Date: 20111010
  Serious: Yes (Hospitalization, Other)
  Sender: FDA-Public Use
  Company Number: PHHY2009JP03108

PATIENT
  Sex: Male
  Weight: 72 kg

DRUGS (15)
  1. BENZBROMARONE [Concomitant]
     Dosage: 100 MG
     Route: 048
     Dates: start: 20070725
  2. FAMOTIDINE [Concomitant]
     Dosage: 20 MG
     Route: 048
     Dates: start: 20070919
  3. DIART [Concomitant]
     Dosage: 30 MG
     Route: 048
     Dates: end: 20081227
  4. FERO-GRADUMET [Concomitant]
     Route: 048
     Dates: start: 20070919
  5. OMEPRAZOLE [Concomitant]
     Dosage: 20 MG
     Route: 048
     Dates: end: 20081227
  6. TANATRIL [Concomitant]
     Indication: HYPERTENSION
     Dosage: 5 MG
     Route: 048
     Dates: end: 20080807
  7. BENIDIPINE HYDROCHLORIDE [Concomitant]
     Indication: HYPERTENSION
     Dosage: 4 MG
     Route: 048
     Dates: start: 20070808
  8. SIGMART [Concomitant]
     Dosage: 15 MG
     Route: 048
     Dates: end: 20081227
  9. KREMEZIN [Concomitant]
     Dosage: 2 G
     Route: 048
     Dates: end: 20090507
  10. ALDACTONE [Concomitant]
     Dosage: 25 MG
     Route: 048
     Dates: end: 20081227
  11. ASPIRIN [Concomitant]
     Dosage: 100 MG
     Route: 048
     Dates: end: 20081227
  12. CARBIDOPA AND LEVODOPA [Concomitant]
     Dosage: 100 MG
     Dates: end: 20081227
  13. VALSARTAN [Suspect]
     Indication: HYPERTENSION
     Dosage: 80 MG, QD
     Route: 048
     Dates: start: 20070808
  14. MUCODYNE [Concomitant]
     Dosage: 25 MG
     Route: 048
     Dates: start: 20080709
  15. ARTANE [Concomitant]
     Dosage: 1 MG
     Route: 048
     Dates: end: 20081227

REACTIONS (5)
  - PNEUMONIA [None]
  - ACUTE MYOCARDIAL INFARCTION [None]
  - RENAL FAILURE [None]
  - DEHYDRATION [None]
  - BLOOD UREA INCREASED [None]
